FAERS Safety Report 15169110 (Version 10)
Quarter: 2019Q3

REPORT INFORMATION
  Report Type: Report from Study
  Country: CN (occurrence: CN)
  Receive Date: 20180720
  Receipt Date: 20190717
  Transmission Date: 20191004
  Serious: Yes (Hospitalization)
  Sender: FDA-Public Use
  Company Number: CN-ROCHE-2146311

PATIENT
  Age: 61 Year
  Sex: Female
  Weight: 50 kg

DRUGS (16)
  1. BEVACIZUMAB. [Suspect]
     Active Substance: BEVACIZUMAB
     Indication: OVARIAN CANCER
     Dosage: STARTED ON 16/JUN/2018?DATE OF MOST RECENT DOSE (825 MG) OF BEVACIZUMAB PRIOR TO SAE ONSET 05/JUL/20
     Route: 042
     Dates: start: 20180616
  2. ASCORBIC ACID. [Concomitant]
     Active Substance: ASCORBIC ACID
     Route: 065
     Dates: start: 20180726, end: 20180726
  3. POTASSIUM CHLORIDE. [Concomitant]
     Active Substance: POTASSIUM CHLORIDE
     Route: 065
     Dates: start: 20180726, end: 20180731
  4. DEXAMETHASONE ACETATE [Concomitant]
     Active Substance: DEXAMETHASONE ACETATE
     Route: 065
     Dates: start: 20180704, end: 20180704
  5. CARBOPLATIN. [Suspect]
     Active Substance: CARBOPLATIN
     Indication: OVARIAN CANCER
     Dosage: AT A DOSE TO ACHIEVE A TARGET AREA UNDER THE CURVE (AUC) OF 6 MILLIGRAMS PER MILLILITER*MINUTE ?DATE
     Route: 042
     Dates: start: 20180615
  6. DIPHENHYDRAMINE HYDROCHLORIDE. [Concomitant]
     Active Substance: DIPHENHYDRAMINE HYDROCHLORIDE
     Route: 065
     Dates: start: 20180704, end: 20180704
  7. PYRIDOXINE [Concomitant]
     Active Substance: PYRIDOXINE
     Route: 065
     Dates: start: 20180704, end: 20180704
  8. POTASSIUM CHLORIDE. [Concomitant]
     Active Substance: POTASSIUM CHLORIDE
     Route: 065
     Dates: start: 20180704, end: 20180704
  9. CIMETIDINE [Concomitant]
     Active Substance: CIMETIDINE
     Route: 065
     Dates: start: 20180704, end: 20180704
  10. ONDANSETRON HYDROCHLORIDE. [Concomitant]
     Active Substance: ONDANSETRON HYDROCHLORIDE
     Indication: VOMITING
     Route: 065
     Dates: start: 20180705, end: 20180705
  11. ASCORBIC ACID. [Concomitant]
     Active Substance: ASCORBIC ACID
     Route: 065
     Dates: start: 20180706, end: 20180706
  12. PACLITAXEL. [Suspect]
     Active Substance: PACLITAXEL
     Indication: OVARIAN CANCER
     Dosage: DATE OF MOST RECENT DOSE (260 MG) OF PACLITAXEL PRIOR TO SAE ONSET 15/JUN/2018?DATE OF MOST RECENT D
     Route: 042
     Dates: start: 20180615
  13. ASCORBIC ACID. [Concomitant]
     Active Substance: ASCORBIC ACID
     Route: 065
     Dates: start: 20180704, end: 20180704
  14. BLINDED ATEZOLIZUMAB [Suspect]
     Active Substance: ATEZOLIZUMAB
     Indication: OVARIAN CANCER
     Dosage: STARTED ON 16/JUN/2018?DATE OF MOST RECENT DOSE OF BLINDED ATEZOLIZUMAB PRIOR TO SAE ONSET 05/JUL/20
     Route: 042
     Dates: start: 20180616
  15. LIDOCAINE. [Concomitant]
     Active Substance: LIDOCAINE
     Route: 065
     Dates: start: 20180705, end: 20180705
  16. GLYCERINE [Concomitant]
     Active Substance: GLYCERIN
     Dosage: MAINTAIN DEFECATE UNOBSTRUCTED
     Route: 065
     Dates: start: 20180726, end: 20180726

REACTIONS (2)
  - Lung infection [Recovered/Resolved]
  - Small intestinal obstruction [Recovered/Resolved with Sequelae]

NARRATIVE: CASE EVENT DATE: 20180625
